FAERS Safety Report 20397661 (Version 2)
Quarter: 2022Q1

REPORT INFORMATION
  Report Type: Spontaneous
  Country: US (occurrence: US)
  Receive Date: 20220131
  Receipt Date: 20220201
  Transmission Date: 20220423
  Serious: No
  Sender: FDA-Public Use
  Company Number: US-ABBVIE-21K-163-3903827-00

PATIENT
  Sex: Male
  Weight: 72.640 kg

DRUGS (6)
  1. HUMIRA [Suspect]
     Active Substance: ADALIMUMAB
     Indication: Crohn^s disease
     Dosage: 15 YEARS AGO
     Route: 058
     Dates: start: 2006
  2. COVID-19 VACCINE [Concomitant]
     Indication: COVID-19 immunisation
     Dosage: MANUFACTURER - MODERNA
     Route: 030
     Dates: start: 20210302, end: 20210302
  3. COVID-19 VACCINE [Concomitant]
     Dosage: MANUFACTURER - MODERNA
     Route: 030
     Dates: start: 20210412, end: 20210412
  4. ELIQUIS [Concomitant]
     Active Substance: APIXABAN
     Indication: Product used for unknown indication
  5. LIPITOR [Concomitant]
     Active Substance: ATORVASTATIN CALCIUM
     Indication: Product used for unknown indication
  6. SERTRALINE [Concomitant]
     Active Substance: SERTRALINE HYDROCHLORIDE
     Indication: Product used for unknown indication

REACTIONS (1)
  - Osteoarthritis [Not Recovered/Not Resolved]
